FAERS Safety Report 24939480 (Version 1)
Quarter: 2025Q1

REPORT INFORMATION
  Report Type: Spontaneous
  Country: FR (occurrence: FR)
  Receive Date: 20250206
  Receipt Date: 20250206
  Transmission Date: 20250408
  Serious: Yes (Hospitalization, Other)
  Sender: AUROBINDO
  Company Number: FR-AFSSAPS-LY2025000084

PATIENT
  Age: 87 Year
  Sex: Female
  Weight: 67 kg

DRUGS (5)
  1. SERTRALINE [Suspect]
     Active Substance: SERTRALINE HYDROCHLORIDE
     Indication: Depression
     Dosage: 50 MILLIGRAM, 3 TIMES A DAY
     Route: 048
     Dates: end: 20240610
  2. FUROSEMIDE [Suspect]
     Active Substance: FUROSEMIDE
     Indication: Product used for unknown indication
     Dosage: 40 MILLIGRAM, ONCE A DAY
     Route: 048
     Dates: end: 202406
  3. RISPERIDONE [Suspect]
     Active Substance: RISPERIDONE
     Indication: Depression
     Dosage: 2 MILLIGRAM, ONCE A DAY
     Route: 048
     Dates: end: 202406
  4. ALPRAZOLAM [Suspect]
     Active Substance: ALPRAZOLAM
     Indication: Depression
     Dosage: 1 MILLIGRAM, ONCE A DAY
     Route: 048
     Dates: end: 20240612
  5. ELIQUIS [Suspect]
     Active Substance: APIXABAN
     Indication: Product used for unknown indication
     Dosage: 5 MILLIGRAM, TWO TIMES A DAY
     Route: 048
     Dates: end: 202406

REACTIONS (1)
  - Colitis microscopic [Recovered/Resolved]

NARRATIVE: CASE EVENT DATE: 20240401
